FAERS Safety Report 20688048 (Version 1)
Quarter: 2022Q2

REPORT INFORMATION
  Report Type: Spontaneous
  Country: US (occurrence: US)
  Receive Date: 20220408
  Receipt Date: 20220408
  Transmission Date: 20220721
  Serious: No
  Sender: FDA-Public Use
  Company Number: US-AMGEN-USASP2022060952

PATIENT
  Age: 42 Year
  Sex: Female

DRUGS (8)
  1. ENBREL [Suspect]
     Active Substance: ETANERCEPT
     Indication: Rheumatoid arthritis
     Dosage: 50 MILLIGRAM, QWK
     Route: 058
     Dates: start: 20220315
  2. AMLODIPINE BESYLATE [Concomitant]
     Active Substance: AMLODIPINE BESYLATE
     Dosage: 10-20 MILLIGRAM
  3. FOLIC ACID [Concomitant]
     Active Substance: FOLIC ACID
     Dosage: 1 MILLIGRAM
  4. HYDROCHLOROTHIAZIDE [Concomitant]
     Active Substance: HYDROCHLOROTHIAZIDE
     Dosage: 50 MILLIGRAM
  5. LISINOPRIL [Concomitant]
     Active Substance: LISINOPRIL
     Dosage: 40 MILLIGRAM
  6. METHOTREXATE [Concomitant]
     Active Substance: METHOTREXATE
     Dosage: 1 GRAM
  7. PREDNISONE [Concomitant]
     Active Substance: PREDNISONE
     Dosage: 20 MILLIGRAM
  8. SULFASALAZINE DELAYED-RELEASE [Concomitant]
     Active Substance: SULFASALAZINE
     Dosage: 500 MILLIGRAM

REACTIONS (4)
  - Rash [Not Recovered/Not Resolved]
  - Feeling hot [Not Recovered/Not Resolved]
  - Depression [Not Recovered/Not Resolved]
  - Psychiatric symptom [Not Recovered/Not Resolved]

NARRATIVE: CASE EVENT DATE: 20220101
